FAERS Safety Report 25382417 (Version 3)
Quarter: 2025Q4

REPORT INFORMATION
  Report Type: Spontaneous
  Country: JP (occurrence: JP)
  Receive Date: 20250601
  Receipt Date: 20251027
  Transmission Date: 20260117
  Serious: No
  Sender: UCB
  Company Number: JP-UCBJ-CD202506987UCBPHAPROD

PATIENT

DRUGS (1)
  1. FINTEPLA [Suspect]
     Active Substance: FENFLURAMINE
     Indication: Lennox-Gastaut syndrome
     Dosage: ORAL USE AND ADMINISTRATION WITH GASTROSTOMY

REACTIONS (5)
  - Coronavirus infection [Unknown]
  - Decreased appetite [Unknown]
  - Poriomania [Unknown]
  - Agitation [Unknown]
  - Off label use [Unknown]
